FAERS Safety Report 9740786 (Version 1)
Quarter: 2013Q4

REPORT INFORMATION
  Report Type: Spontaneous
  Country: FR (occurrence: FR)
  Receive Date: 20131209
  Receipt Date: 20131209
  Transmission Date: 20140711
  Serious: Yes (Death, Other)
  Sender: FDA-Public Use
  Company Number: FR-PFIZER INC-2013350081

PATIENT
  Age: 82 Year
  Sex: Male

DRUGS (12)
  1. DEPO-PROVERA [Suspect]
     Dosage: 3 ML, SINGLE
     Route: 030
     Dates: start: 20131022
  2. FENTANYL [Suspect]
     Indication: SPINAL COMPRESSION FRACTURE
     Dosage: 12 UG, 1X/DAY
     Route: 062
     Dates: start: 201311
  3. HALDOL [Suspect]
     Dosage: 20 GTT, 3X/DAY
     Route: 048
  4. HALDOL [Suspect]
     Dosage: 30 GTT, 3X/DAY
     Route: 048
     Dates: start: 20131022
  5. HALDOL [Suspect]
     Dosage: 10 GTT, 3X/DAY
     Route: 048
  6. DEPAMIDE [Suspect]
     Dosage: 300 MG, 1X/DAY
     Route: 048
     Dates: start: 201309
  7. DEPAMIDE [Suspect]
     Dosage: 300 MG, 2X/DAY
     Dates: start: 20131022
  8. ZOPLICONE [Concomitant]
     Dosage: 7.5 MG, 1X/DAY
     Route: 048
     Dates: end: 20131119
  9. TAMSULOSIN HYDROCHLORIDE [Concomitant]
     Dosage: 0.4 UG, 1X/DAY
     Route: 048
     Dates: end: 20131119
  10. BISOPROLOL FUMARATE [Concomitant]
     Dosage: 2.5 MG, 1X/DAY
     Route: 048
  11. BISOPROLOL FUMARATE [Concomitant]
     Dosage: 1.25 MG, 1X/DAY
     Dates: start: 20131114, end: 20131119
  12. ALLOPURINOL [Concomitant]
     Dosage: 100 MG, 1X/DAY
     Route: 048
     Dates: end: 20131119

REACTIONS (8)
  - Pulmonary embolism [Fatal]
  - Breath sounds abnormal [Fatal]
  - Cyanosis [Fatal]
  - Livedo reticularis [Fatal]
  - Somnolence [Fatal]
  - Spinal compression fracture [Unknown]
  - Fall [Unknown]
  - Off label use [Unknown]
